FAERS Safety Report 22142221 (Version 1)
Quarter: 2023Q1

REPORT INFORMATION
  Report Type: Spontaneous
  Country: US (occurrence: US)
  Receive Date: 20230327
  Receipt Date: 20230327
  Transmission Date: 20230417
  Serious: Yes (Other)
  Sender: FDA-Public Use
  Company Number: US-PFIZER INC-PV202300055217

PATIENT
  Age: 30 Year
  Sex: Female

DRUGS (1)
  1. XELJANZ [Suspect]
     Active Substance: TOFACITINIB CITRATE
     Indication: Takayasu^s arteritis
     Dosage: 5 MG, 2X/DAY
     Route: 048
     Dates: start: 202103

REACTIONS (3)
  - Brachiocephalic artery occlusion [Unknown]
  - Carotid artery occlusion [Unknown]
  - Off label use [Unknown]
